FAERS Safety Report 5371760-0 (Version None)
Quarter: 2007Q2

REPORT INFORMATION
  Report Type: 
  Country: None (occurrence: None)
  Receive Date: 20070627
  Receipt Date: 20070620
  Transmission Date: 20071010
  Serious: Yes (Other)
  Sender: FDA-Public Use
  Company Number: FR-BRISTOL-MYERS SQUIBB COMPANY-13744388

PATIENT
  Age: 19 Year
  Sex: Male

DRUGS (3)
  1. LYSODREN [Suspect]
     Indication: PITUITARY-DEPENDENT CUSHING'S SYNDROME
     Route: 048
     Dates: start: 20061101
  2. KETOCONAZOLE [Concomitant]
     Dates: end: 20070101
  3. METOPIRONE [Concomitant]

REACTIONS (1)
  - TRANSAMINASES INCREASED [None]
